FAERS Safety Report 16851742 (Version 5)
Quarter: 2020Q2

REPORT INFORMATION
  Report Type: Report from Study
  Country: US (occurrence: US)
  Receive Date: 20190925
  Receipt Date: 20200604
  Transmission Date: 20200713
  Serious: Yes (Hospitalization)
  Sender: FDA-Public Use
  Company Number: US-ACTELION-A-NJ2018-182809

PATIENT
  Age: 70 Year
  Sex: Female
  Weight: 83.45 kg

DRUGS (9)
  1. UPTRAVI [Suspect]
     Active Substance: SELEXIPAG
     Dosage: 1200 MCG, BID
     Route: 048
  2. ADCIRCA [Concomitant]
     Active Substance: TADALAFIL
  3. OPSUMIT [Suspect]
     Active Substance: MACITENTAN
     Indication: PULMONARY ARTERIAL HYPERTENSION
     Dosage: 10 MG, QD
     Route: 048
  4. UPTRAVI [Suspect]
     Active Substance: SELEXIPAG
     Dosage: 1600 MCG, BID
     Route: 048
  5. UPTRAVI [Suspect]
     Active Substance: SELEXIPAG
     Indication: PULMONARY ARTERIAL HYPERTENSION
     Dosage: 800 MCG, BID
     Route: 048
  6. UPTRAVI [Suspect]
     Active Substance: SELEXIPAG
     Dosage: 1200 MCG, QAM
     Route: 048
  7. UPTRAVI [Suspect]
     Active Substance: SELEXIPAG
     Dosage: 1000 MCG, BID
     Route: 048
  8. NIFEDIPINE. [Concomitant]
     Active Substance: NIFEDIPINE
  9. ADEMPAS [Concomitant]
     Active Substance: RIOCIGUAT

REACTIONS (14)
  - Dyspnoea [Not Recovered/Not Resolved]
  - Weight decreased [Unknown]
  - Fluid retention [Unknown]
  - Feeling jittery [Unknown]
  - Headache [Unknown]
  - Diarrhoea [Unknown]
  - Inappropriate schedule of product administration [Not Recovered/Not Resolved]
  - Chest discomfort [Unknown]
  - Cardiac failure congestive [Unknown]
  - Joint swelling [Unknown]
  - Nasal congestion [Not Recovered/Not Resolved]
  - Oxygen consumption [Unknown]
  - Abdominal discomfort [Unknown]
  - Nausea [Unknown]

NARRATIVE: CASE EVENT DATE: 20181213
